FAERS Safety Report 9213158 (Version 1)
Quarter: 2013Q2

REPORT INFORMATION
  Report Type: Spontaneous
  Country: AR (occurrence: AR)
  Receive Date: 20130405
  Receipt Date: 20130405
  Transmission Date: 20140414
  Serious: Yes (Other)
  Sender: FDA-Public Use
  Company Number: AR-AMGEN-ARGSP2013001352

PATIENT
  Age: 44 Year
  Sex: Female

DRUGS (9)
  1. ENBREL [Suspect]
     Indication: RHEUMATOID ARTHRITIS
     Dosage: 50 MG, WEEKLY
     Route: 058
     Dates: start: 20070308, end: 201211
  2. ACIFOL                             /00024201/ [Concomitant]
     Dosage: UNK
  3. PREDNISONE [Concomitant]
     Dosage: UNK
  4. INDOMETACIN [Concomitant]
     Dosage: UNK
  5. HYDROXYCHLOROQUINE [Concomitant]
     Dosage: UNK
  6. ARCOXIA [Concomitant]
     Dosage: UNK
  7. T4 [Concomitant]
     Dosage: UNK
  8. ARTRAIT                            /00113801/ [Concomitant]
     Dosage: UNK
  9. REDOXON                            /00008001/ [Concomitant]
     Dosage: UNK

REACTIONS (6)
  - Musculoskeletal disorder [Recovering/Resolving]
  - Arthropathy [Recovering/Resolving]
  - Fall [Recovering/Resolving]
  - Walking aid user [Recovered/Resolved]
  - Viral infection [Recovering/Resolving]
  - Drug ineffective [Not Recovered/Not Resolved]
